FAERS Safety Report 4966034-3 (Version None)
Quarter: 2006Q2

REPORT INFORMATION
  Report Type: 
  Country: None (occurrence: None)
  Receive Date: 20060407
  Receipt Date: 20060330
  Transmission Date: 20061013
  Serious: Yes (Hospitalization)
  Sender: FDA-Public Use
  Company Number: FR-GLAXOSMITHKLINE-B0418975A

PATIENT
  Age: 18 Year
  Sex: Female

DRUGS (15)
  1. AUGMENTIN '125' [Suspect]
     Dosage: 3G PER DAY
     Route: 042
     Dates: start: 20060109, end: 20060125
  2. LOVENOX [Suspect]
     Dosage: 40MG PER DAY
     Route: 058
     Dates: start: 20060109, end: 20060110
  3. NIMBEX [Concomitant]
     Dates: start: 20060109, end: 20060109
  4. ZOPHREN [Concomitant]
     Dates: start: 20060109, end: 20060109
  5. PERFALGAN [Concomitant]
     Dosage: 3INJ PER DAY
     Route: 042
     Dates: start: 20060109, end: 20060120
  6. SPASFON [Concomitant]
     Dosage: 6INJ PER DAY
     Route: 042
     Dates: start: 20060109, end: 20060119
  7. PROFENID [Concomitant]
     Dosage: 200MG PER DAY
     Route: 042
     Dates: start: 20060109, end: 20060111
  8. MOPRAL [Concomitant]
     Dosage: 40MG PER DAY
     Route: 042
     Dates: start: 20060109, end: 20060118
  9. SUFENTA [Concomitant]
     Dates: start: 20060109, end: 20060109
  10. MIDAZOLAM [Concomitant]
     Dates: start: 20060109, end: 20060109
  11. PROPOFOL [Concomitant]
     Dates: start: 20060109, end: 20060109
  12. PRIMPERAN TAB [Concomitant]
     Dates: start: 20060109, end: 20060109
  13. TOPALGIC (FRANCE) [Concomitant]
     Dates: start: 20060109, end: 20060116
  14. MORPHINE [Concomitant]
     Dates: start: 20060110, end: 20060116
  15. TRANXENE [Concomitant]
     Dates: start: 20060110, end: 20060119

REACTIONS (4)
  - ABDOMINAL PAIN [None]
  - ANAEMIA [None]
  - DRUG INTERACTION [None]
  - INTRA-ABDOMINAL HAEMORRHAGE [None]
